FAERS Safety Report 15479130 (Version 3)
Quarter: 2018Q4

REPORT INFORMATION
  Report Type: Spontaneous
  Country: ES (occurrence: ES)
  Receive Date: 20181009
  Receipt Date: 20181012
  Transmission Date: 20190205
  Serious: Yes (Other)
  Sender: FDA-Public Use
  Company Number: ES-009507513-1810ESP001100

PATIENT
  Age: 73 Year
  Sex: Male

DRUGS (17)
  1. RISTFOR [Suspect]
     Active Substance: METFORMIN HYDROCHLORIDE\SITAGLIPTIN PHOSPHATE
     Dosage: UNK
     Route: 048
     Dates: start: 20161201, end: 20180927
  2. QUETIAPINE FUMARATE. [Concomitant]
     Active Substance: QUETIAPINE FUMARATE
     Dosage: 25 MG, QD (REPORTED AS NO. OF UNITS PER INTERVAL:1-INTERVAL: DAY)
  3. QUETIAPINE FUMARATE. [Concomitant]
     Active Substance: QUETIAPINE FUMARATE
     Dosage: 25 MG, QD (REPORTED AS NO. OF UNITS PER INTERVAL:1-INTERVAL: DAY)
  4. EMCONCOR COR [Concomitant]
     Active Substance: BISOPROLOL
     Dosage: 0.5 DF, QD (REPORTED AS NO. OF UNITS PER INTERVAL:1-INTERVAL: DAY)
  5. CITICOLINE [Concomitant]
     Active Substance: CITICOLINE
     Dosage: 1000 MG, QD (REPORTED AS NO. OF UNITS PER INTERVAL:1-INTERVAL: DAY)
  6. RANITIDINE. [Concomitant]
     Active Substance: RANITIDINE
     Dosage: 150 MG, QD (REPORTED AS NO. OF UNITS PER INTERVAL:1-INTERVAL: DAY)
  7. RANITIDINE. [Concomitant]
     Active Substance: RANITIDINE
     Dosage: 150 MG, QD (REPORTED AS NO. OF UNITS PER INTERVAL:1-INTERVAL: DAY)
  8. ATARAX [Concomitant]
     Active Substance: HYDROXYZINE HYDROCHLORIDE
     Dosage: 25 MG, QD (REPORTED AS NO. OF UNITS PER INTERVAL:1-INTERVAL: DAY)
  9. ASPIRIN. [Concomitant]
     Active Substance: ASPIRIN
     Dosage: 100 MG, QD (REPORTED AS NO. OF UNITS PER INTERVAL:1-INTERVAL: DAY)
  10. STILNOX [Concomitant]
     Active Substance: ZOLPIDEM TARTRATE
     Dosage: 0.6 DF, QD (REPORTED AS NO. OF UNITS PER INTERVAL:1-INTERVAL: DAY)
  11. SINEQUAN [Concomitant]
     Active Substance: DOXEPIN HYDROCHLORIDE
     Dosage: 25 MG, QD (REPORTED AS NO. OF UNITS PER INTERVAL:1-INTERVAL: DAY)
  12. ATARAX [Concomitant]
     Active Substance: HYDROXYZINE HYDROCHLORIDE
     Dosage: 25 MG, QD (REPORTED AS NO. OF UNITS PER INTERVAL:1-INTERVAL: DAY)
  13. ATORVASTATIN [Concomitant]
     Active Substance: ATORVASTATIN
     Dosage: 20 MG, QD (REPORTED AS NO. OF UNITS PER INTERVAL:1-INTERVAL: DAY)
  14. SINEQUAN [Concomitant]
     Active Substance: DOXEPIN HYDROCHLORIDE
     Dosage: 25 MG, QD (REPORTED AS NO. OF UNITS PER INTERVAL:1-INTERVAL: DAY)
  15. LANTUS [Concomitant]
     Active Substance: INSULIN GLARGINE
  16. HYDROCHLOROTHIAZIDE. [Concomitant]
     Active Substance: HYDROCHLOROTHIAZIDE
     Dosage: 12.5 MG, QD  (REPORTED AS NO. OF UNITS PER INTERVAL:1-INTERVAL: DAY)
  17. ATARAX [Concomitant]
     Active Substance: HYDROXYZINE HYDROCHLORIDE
     Dosage: 25 MG, QD (REPORTED AS NO. OF UNITS PER INTERVAL:1-INTERVAL: DAY)

REACTIONS (1)
  - Pemphigus [Not Recovered/Not Resolved]

NARRATIVE: CASE EVENT DATE: 201808
